FAERS Safety Report 5693005-4 (Version None)
Quarter: 2008Q2

REPORT INFORMATION
  Report Type: 
  Country: None (occurrence: None)
  Receive Date: 20080402
  Receipt Date: 20080402
  Transmission Date: 20081010
  Serious: Yes (Life-Threatening, Hospitalization, Disabling, Other)
  Sender: FDA-Public Use
  Company Number: None

PATIENT
  Age: 54 Year
  Sex: Male
  Weight: 86.1834 kg

DRUGS (4)
  1. CIPRO [Suspect]
     Dosage: WEEKS AT A TIME
     Dates: start: 20031001
  2. CIPRO [Suspect]
     Dosage: WEEKS AT A TIME
     Dates: start: 20040201
  3. CIPRO [Suspect]
     Dosage: WEEKS AT A TIME
     Dates: start: 20050301
  4. CIPRO [Suspect]
     Dosage: WEEKS AT A TIME
     Dates: start: 20050401

REACTIONS (8)
  - DRUG INEFFECTIVE [None]
  - FATIGUE [None]
  - JOINT CREPITATION [None]
  - MUSCLE SPASMS [None]
  - MUSCULOSKELETAL PAIN [None]
  - PAIN IN EXTREMITY [None]
  - PARAESTHESIA [None]
  - TINNITUS [None]
